FAERS Safety Report 15620888 (Version 1)
Quarter: 2018Q4

REPORT INFORMATION
  Report Type: Spontaneous
  Country: US (occurrence: US)
  Receive Date: 20181115
  Receipt Date: 20181115
  Transmission Date: 20190205
  Serious: Yes (Life-Threatening)
  Sender: FDA-Public Use
  Company Number: US-FRESENIUS KABI-FK201811691

PATIENT
  Age: 63 Year
  Sex: Male

DRUGS (1)
  1. TRANEXAMIC ACID (MANUFACTURER UNKNOWN) [Suspect]
     Active Substance: TRANEXAMIC ACID
     Indication: SPINAL ANAESTHESIA
     Route: 037

REACTIONS (7)
  - Product administration error [Recovered/Resolved]
  - Hypertension [Recovered/Resolved]
  - Administration related reaction [Recovered/Resolved]
  - Myoclonus [Recovered/Resolved]
  - Heart rate increased [Recovered/Resolved]
  - Hypoxia [Recovered/Resolved]
  - Respiratory rate increased [Recovered/Resolved]
